FAERS Safety Report 6443067-1 (Version None)
Quarter: 2009Q4

REPORT INFORMATION
  Report Type: 
  Country: None (occurrence: None)
  Receive Date: 20091117
  Receipt Date: 20091110
  Transmission Date: 20100525
  Serious: Yes (Hospitalization)
  Sender: FDA-Public Use
  Company Number: US-ALEXION-A200900952

PATIENT
  Sex: Female

DRUGS (10)
  1. SOLIRIS [Suspect]
     Indication: PAROXYSMAL NOCTURNAL HAEMOGLOBINURIA
     Dosage: 600 MG, QW
     Route: 042
     Dates: start: 20090803
  2. SOLIRIS [Suspect]
     Dosage: 900 MG, Q2W
     Route: 042
     Dates: start: 20090831
  3. COUMADIN [Concomitant]
  4. OXYCONTIN [Concomitant]
  5. NEURONTIN [Concomitant]
  6. LORAZEPAM [Concomitant]
  7. ALBUTEROL [Concomitant]
  8. OMEPRAZOLE [Concomitant]
  9. NITROGLYCERIN [Concomitant]
  10. HYDROCHLOROTHIAZIDE [Concomitant]

REACTIONS (3)
  - CHROMATURIA [None]
  - PNEUMONIA [None]
  - RENAL PAIN [None]
